FAERS Safety Report 18359849 (Version 1)
Quarter: 2020Q4

REPORT INFORMATION
  Report Type: Other
  Country: BE (occurrence: BE)
  Receive Date: 20201008
  Receipt Date: 20201008
  Transmission Date: 20210114
  Serious: Yes (Other)
  Sender: FDA-Public Use
  Company Number: BE-ROCHE-2686714

PATIENT

DRUGS (3)
  1. TIPIRACIL;TRIFLURIDINE [Suspect]
     Active Substance: TIPIRACIL HYDROCHLORIDE\TRIFLURIDINE
     Indication: COLORECTAL CANCER METASTATIC
     Route: 048
  2. BEVACIZUMAB. [Suspect]
     Active Substance: BEVACIZUMAB
     Indication: COLORECTAL CANCER METASTATIC
     Route: 042
  3. CAPECITABINE. [Suspect]
     Active Substance: CAPECITABINE
     Indication: COLORECTAL CANCER METASTATIC
     Dosage: DAYS 1-14 OF EACH CYCLE
     Route: 048

REACTIONS (21)
  - Decreased appetite [Unknown]
  - Asthenia [Unknown]
  - Neutrophil count decreased [Unknown]
  - Vomiting [Unknown]
  - Hypertension [Unknown]
  - Dyspnoea [Unknown]
  - Neutropenia [Unknown]
  - Febrile neutropenia [Unknown]
  - Blood bilirubin increased [Unknown]
  - Diarrhoea [Unknown]
  - Fatigue [Unknown]
  - Stomatitis [Unknown]
  - Abdominal pain [Unknown]
  - Weight decreased [Unknown]
  - Nausea [Unknown]
  - Palmar-plantar erythrodysaesthesia syndrome [Unknown]
  - Anaemia [Unknown]
  - Thrombocytopenia [Unknown]
  - White blood cell count decreased [Unknown]
  - Malignant neoplasm progression [Unknown]
  - Alanine aminotransferase increased [Unknown]
